FAERS Safety Report 23769531 (Version 1)
Quarter: 2024Q2

REPORT INFORMATION
  Report Type: Report from Study
  Country: US (occurrence: US)
  Receive Date: 20240422
  Receipt Date: 20240422
  Transmission Date: 20240716
  Serious: Yes (Other)
  Sender: FDA-Public Use
  Company Number: US-ABBVIE-5724805

PATIENT
  Age: 67 Year
  Sex: Female

DRUGS (2)
  1. HUMIRA [Suspect]
     Active Substance: ADALIMUMAB
     Indication: Hidradenitis
     Route: 058
     Dates: start: 202404
  2. HUMIRA [Suspect]
     Active Substance: ADALIMUMAB
     Dosage: DISCONTINUED IN OCTOBER OR NOVEMBER 2023
     Route: 058
     Dates: start: 20230203

REACTIONS (2)
  - Chronic kidney disease [Recovering/Resolving]
  - Investigation abnormal [Unknown]

NARRATIVE: CASE EVENT DATE: 20231015
